FAERS Safety Report 25564776 (Version 1)
Quarter: 2025Q3

REPORT INFORMATION
  Report Type: Spontaneous
  Country: US (occurrence: None)
  Receive Date: 20250715
  Receipt Date: 20250715
  Transmission Date: 20251021
  Serious: No
  Sender: FDA-CTU
  Company Number: None

PATIENT
  Age: 77 Year
  Sex: Male

DRUGS (1)
  1. LENALIDOMIDE [Suspect]
     Active Substance: LENALIDOMIDE
     Indication: Myelodysplastic syndrome
     Dosage: 5 MG QD ORAL
     Route: 048
     Dates: start: 20231110, end: 20250715

REACTIONS (3)
  - Diarrhoea [None]
  - Joint swelling [None]
  - Therapy interrupted [None]

NARRATIVE: CASE EVENT DATE: 20250715
